FAERS Safety Report 9619665 (Version 3)
Quarter: 2013Q4

REPORT INFORMATION
  Report Type: Report from Study
  Country: US (occurrence: US)
  Receive Date: 20131014
  Receipt Date: 20131115
  Transmission Date: 20140711
  Serious: Yes (Hospitalization)
  Sender: FDA-Public Use
  Company Number: US-PFIZER INC-2013281205

PATIENT
  Age: 66 Year
  Sex: Male
  Weight: 73 kg

DRUGS (9)
  1. AXITINIB [Suspect]
     Indication: RECTAL CANCER METASTATIC
     Dosage: 3 MG, BID
     Route: 048
     Dates: start: 20121121, end: 20130916
  2. AXITINIB [Suspect]
     Dosage: 3 MG, BID
     Route: 048
     Dates: end: 20130926
  3. ATENOLOL [Concomitant]
  4. DIPHENOXYLATE-ATROPINE [Concomitant]
  5. HYDROCHLOROTHIAZIDE [Concomitant]
  6. AMYLASE/LIPASE/PROTEASE [Concomitant]
  7. NAPROXEN SODIUM [Concomitant]
  8. OCTREOTIDE [Concomitant]
  9. PRAZOSIN [Concomitant]

REACTIONS (4)
  - Pancreatitis [Recovered/Resolved]
  - Rectal ulcer [Not Recovered/Not Resolved]
  - Bile duct obstruction [Recovered/Resolved]
  - Hyperbilirubinaemia [Recovered/Resolved]
